FAERS Safety Report 18962373 (Version 1)
Quarter: 2021Q1

REPORT INFORMATION
  Report Type: Report from Study
  Country: DE (occurrence: DE)
  Receive Date: 20210303
  Receipt Date: 20210303
  Transmission Date: 20210420
  Serious: Yes (Life-Threatening, Hospitalization)
  Sender: FDA-Public Use
  Company Number: NVSC2021DE046863

PATIENT
  Age: 72 Year
  Sex: Male
  Weight: 86 kg

DRUGS (4)
  1. ACETYLSALICYLIC ACID [Suspect]
     Active Substance: ASPIRIN
     Indication: GIANT CELL ARTERITIS
     Dosage: 75 MG, QD
     Route: 065
     Dates: start: 20191015
  2. BLINDED AIN457 [Suspect]
     Active Substance: SECUKINUMAB
     Indication: GIANT CELL ARTERITIS
     Dosage: CODE NOT BROKEN
     Route: 058
     Dates: start: 20200102
  3. PLACEBO [Suspect]
     Active Substance: UNSPECIFIED INGREDIENT
     Indication: GIANT CELL ARTERITIS
     Dosage: CODE NOT BROKEN
     Route: 058
     Dates: start: 20200102
  4. BLINDED NO TREATMENT RECEIVED [Suspect]
     Active Substance: INVESTIGATIONAL PRODUCT
     Indication: GIANT CELL ARTERITIS
     Dosage: CODE NOT BROKEN
     Route: 058
     Dates: start: 20200102

REACTIONS (2)
  - Dizziness [Recovering/Resolving]
  - Subarachnoid haemorrhage [Not Recovered/Not Resolved]

NARRATIVE: CASE EVENT DATE: 20210213
